FAERS Safety Report 10249924 (Version 1)
Quarter: 2014Q2

REPORT INFORMATION
  Report Type: Spontaneous
  Country: NL (occurrence: NL)
  Receive Date: 20140620
  Receipt Date: 20140620
  Transmission Date: 20141212
  Serious: Yes (Death)
  Sender: FDA-Public Use
  Company Number: NL-AMGEN INC.-NLDSP2014046172

PATIENT
  Age: 83 Year
  Sex: Male

DRUGS (2)
  1. NEULASTA [Suspect]
     Indication: PROPHYLAXIS
     Dosage: 10 MG/ML WWSP 0.6 ML, EVERY 3 WEEKS
     Route: 058
     Dates: start: 20140531, end: 20140617
  2. ARANESP [Suspect]
     Indication: MYELODYSPLASTIC SYNDROME
     Dosage: 500 MUG/ML WWSP 0.3 ML, EVERY WEEK
     Route: 058
     Dates: start: 20130918, end: 20140617

REACTIONS (1)
  - Death [Fatal]
